FAERS Safety Report 21510594 (Version 1)
Quarter: 2022Q4

REPORT INFORMATION
  Report Type: Spontaneous
  Country: CZ (occurrence: CZ)
  Receive Date: 20221026
  Receipt Date: 20221026
  Transmission Date: 20230113
  Serious: Yes (Hospitalization)
  Sender: FDA-Public Use
  Company Number: CZ-LEO Pharma-346374

PATIENT
  Sex: Female

DRUGS (1)
  1. BRODALUMAB [Suspect]
     Active Substance: BRODALUMAB
     Indication: Product used for unknown indication
     Route: 058
     Dates: start: 201912, end: 202209

REACTIONS (1)
  - Gallbladder cancer [Unknown]

NARRATIVE: CASE EVENT DATE: 20220901
